FAERS Safety Report 23532201 (Version 1)
Quarter: 2024Q1

REPORT INFORMATION
  Report Type: Spontaneous
  Country: CA (occurrence: CA)
  Receive Date: 20240216
  Receipt Date: 20240216
  Transmission Date: 20240410
  Serious: Yes (Other)
  Sender: FDA-Public Use
  Company Number: CA-Vifor (International) Inc.-VIT-2024-01407

PATIENT

DRUGS (1)
  1. VELPHORO [Suspect]
     Active Substance: SUCROFERRIC OXYHYDROXIDE
     Indication: Product used for unknown indication
     Dosage: STARTED 3 TO 4 YEARS AGO
     Route: 048

REACTIONS (2)
  - Malabsorption [Unknown]
  - Serum ferritin increased [Unknown]
